FAERS Safety Report 23381297 (Version 1)
Quarter: 2024Q1

REPORT INFORMATION
  Report Type: Spontaneous
  Country: US (occurrence: US)
  Receive Date: 20240109
  Receipt Date: 20240109
  Transmission Date: 20240409
  Serious: Yes (Other)
  Sender: FDA-Public Use
  Company Number: US-NOVOPROD-1159004

PATIENT
  Age: 52 Year
  Sex: Male

DRUGS (1)
  1. OZEMPIC [Suspect]
     Active Substance: SEMAGLUTIDE
     Indication: Diabetes mellitus
     Dosage: 0.5 MG QW
     Route: 058

REACTIONS (3)
  - Appendicitis [Unknown]
  - Peritonitis [Unknown]
  - Neuroendocrine tumour [Unknown]

NARRATIVE: CASE EVENT DATE: 20231205
